FAERS Safety Report 9491115 (Version 1)
Quarter: 2013Q3

REPORT INFORMATION
  Report Type: Spontaneous
  Country: FR (occurrence: FR)
  Receive Date: 20130830
  Receipt Date: 20130830
  Transmission Date: 20140515
  Serious: Yes (Hospitalization)
  Sender: FDA-Public Use
  Company Number: FR-B.I. PHARMACEUTICALS,INC./RIDGEFIELD-2013-FF-02228FF

PATIENT
  Age: 79 Year
  Sex: Female

DRUGS (3)
  1. PRADAXA [Suspect]
     Dosage: 220 MG
     Route: 048
     Dates: end: 20130727
  2. CANDESARTAN [Suspect]
     Dosage: 25 MG
     Route: 048
     Dates: end: 20130727
  3. SPIRONOLACTONE [Suspect]
     Dosage: 25 MG
     Route: 048
     Dates: end: 20130727

REACTIONS (3)
  - Melaena [Not Recovered/Not Resolved]
  - Dyspnoea [Not Recovered/Not Resolved]
  - Anaemia [Not Recovered/Not Resolved]
